FAERS Safety Report 12801728 (Version 1)
Quarter: 2016Q3

REPORT INFORMATION
  Report Type: Spontaneous
  Country: US (occurrence: US)
  Receive Date: 20160930
  Receipt Date: 20160930
  Transmission Date: 20161109
  Serious: No
  Sender: FDA-Public Use
  Company Number: None

PATIENT
  Age: 54 Year
  Sex: Male

DRUGS (1)
  1. CYCLOSPORINE CAP MOD 100MG [Suspect]
     Active Substance: CYCLOSPORINE
     Indication: HEART TRANSPLANT

REACTIONS (3)
  - Malnutrition [None]
  - Endocrine disorder [None]
  - Metabolic disorder [None]

NARRATIVE: CASE EVENT DATE: 20160914
